FAERS Safety Report 8535328-7 (Version None)
Quarter: 2012Q3

REPORT INFORMATION
  Report Type: 
  Country: None (occurrence: None)
  Receive Date: 20120725
  Receipt Date: 20120716
  Transmission Date: 20120928
  Serious: Yes (Hospitalization)
  Sender: FDA-Public Use
  Company Number: US-BIOGENIDEC-2012BI026236

PATIENT
  Sex: Female

DRUGS (1)
  1. TYSABRI [Suspect]
     Indication: MULTIPLE SCLEROSIS
     Route: 042
     Dates: start: 20080722

REACTIONS (6)
  - BACK PAIN [None]
  - CONCUSSION [None]
  - URINARY TRACT INFECTION [None]
  - FALL [None]
  - PERIORBITAL HAEMATOMA [None]
  - MEMORY IMPAIRMENT [None]
